FAERS Safety Report 10522220 (Version 1)
Quarter: 2014Q4

REPORT INFORMATION
  Report Type: Spontaneous
  Country: US (occurrence: None)
  Receive Date: 20141014
  Receipt Date: 20141014
  Transmission Date: 20150528
  Serious: No
  Sender: FDA-Public Use
  Company Number: None

PATIENT
  Age: 54 Year
  Sex: Male
  Weight: 128.6 kg

DRUGS (1)
  1. DOCUSATE [Suspect]
     Active Substance: DOCUSATE
     Indication: NEUROGENIC BOWEL

REACTIONS (4)
  - Constipation [None]
  - Autonomic dysreflexia [None]
  - Product physical issue [None]
  - Urinary retention [None]
